FAERS Safety Report 9059689 (Version 1)
Quarter: 2013Q1

REPORT INFORMATION
  Report Type: Spontaneous
  Country: US (occurrence: None)
  Receive Date: 20130206
  Receipt Date: 20130206
  Transmission Date: 20140127
  Serious: No
  Sender: FDA-Public Use
  Company Number: None

PATIENT
  Age: 62 Year
  Sex: Male
  Weight: 78.2 kg

DRUGS (2)
  1. LISINOPRIL [Suspect]
     Indication: HYPERTENSION
     Dates: start: 20111031, end: 20130129
  2. LISINOPRIL [Suspect]
     Indication: DIABETES MELLITUS
     Dates: start: 20111031, end: 20130129

REACTIONS (1)
  - Angioedema [None]
